FAERS Safety Report 4795222-4 (Version None)
Quarter: 2005Q4

REPORT INFORMATION
  Report Type: 
  Country: None (occurrence: None)
  Receive Date: 20051005
  Receipt Date: 20051005
  Transmission Date: 20060501
  Serious: No
  Sender: FDA-Public Use
  Company Number: None

PATIENT
  Age: 54 Year
  Sex: Female
  Weight: 106.5953 kg

DRUGS (4)
  1. ADVAIR DISKUS 100/50 [Suspect]
     Indication: ASTHMA
     Dosage: 250/50 INHALATION
  2. LAMOTRIGINE [Concomitant]
  3. AMOXOTINE [Concomitant]
  4. AVAPRO [Concomitant]

REACTIONS (3)
  - GLOSSODYNIA [None]
  - MIDDLE INSOMNIA [None]
  - TONGUE BLISTERING [None]
